FAERS Safety Report 7621107-1 (Version None)
Quarter: 2011Q3

REPORT INFORMATION
  Report Type: 
  Country: None (occurrence: None)
  Receive Date: 20110719
  Receipt Date: 20100608
  Transmission Date: 20111222
  Serious: No
  Sender: FDA-Public Use
  Company Number: US-KINGPHARMUSA00001-K201000708

PATIENT
  Age: 55 Year
  Sex: Male
  Weight: 72.562 kg

DRUGS (3)
  1. CAFFEINE CITRATE [Suspect]
     Dosage: UNK
     Route: 048
     Dates: end: 20100101
  2. TIMOLOL [Concomitant]
     Indication: GLAUCOMA
     Dosage: GTT, UNK
     Route: 031
  3. LEVOXYL [Suspect]
     Indication: THYROIDECTOMY
     Dosage: 150 MCG, QD
     Route: 048

REACTIONS (2)
  - PALPITATIONS [None]
  - HEART RATE INCREASED [None]
